FAERS Safety Report 5467215-5 (Version None)
Quarter: 2007Q3

REPORT INFORMATION
  Report Type: 
  Country: None (occurrence: None)
  Receive Date: 20070925
  Receipt Date: 20070913
  Transmission Date: 20080115
  Serious: Yes (Other)
  Sender: FDA-Public Use
  Company Number: CA-GENENTECH-247894

PATIENT
  Age: 62 Year
  Sex: Male

DRUGS (4)
  1. BEVACIZUMAB [Suspect]
     Indication: SMALL CELL LUNG CANCER STAGE UNSPECIFIED
     Dosage: 10 MG/KG, Q2W
  2. CISPLATIN [Concomitant]
     Indication: SMALL CELL LUNG CANCER STAGE UNSPECIFIED
  3. TAXOTERE [Concomitant]
     Indication: SMALL CELL LUNG CANCER STAGE UNSPECIFIED
  4. CYTOXAN [Suspect]

REACTIONS (1)
  - THROMBOTIC MICROANGIOPATHY [None]
